FAERS Safety Report 6166345-2 (Version None)
Quarter: 2009Q2

REPORT INFORMATION
  Report Type: 
  Country: None (occurrence: None)
  Receive Date: 20090422
  Receipt Date: 20090422
  Transmission Date: 20091009
  Serious: Yes (Hospitalization)
  Sender: FDA-Public Use
  Company Number: None

PATIENT
  Sex: Male
  Weight: 66.8 kg

DRUGS (3)
  1. LENALIDOMIDE [Suspect]
     Indication: HODGKIN'S DISEASE
     Dosage: 25 MG/DAY PO
     Route: 048
     Dates: start: 20090108, end: 20090225
  2. VALTREX [Concomitant]
  3. OXYCODONE HCL [Concomitant]

REACTIONS (3)
  - HODGKIN'S DISEASE [None]
  - MALIGNANT NEOPLASM PROGRESSION [None]
  - VOMITING [None]
